FAERS Safety Report 6357418-X (Version None)
Quarter: 2009Q3

REPORT INFORMATION
  Report Type: 
  Country: None (occurrence: None)
  Receive Date: 20090916
  Receipt Date: 20070516
  Transmission Date: 20100115
  Serious: Yes (Other)
  Sender: FDA-Public Use
  Company Number: US-ASTRAZENECA-2006UW11845

PATIENT
  Age: 463 Month
  Sex: Female
  Weight: 73 kg

DRUGS (14)
  1. SEROQUEL [Suspect]
     Indication: SCHIZOPHRENIA
     Dosage: 200-300 MG
     Route: 048
     Dates: start: 20020101
  2. SEROQUEL [Suspect]
     Indication: DEPRESSION
     Dosage: 200-300 MG
     Route: 048
     Dates: start: 20020101
  3. SEROQUEL [Suspect]
     Indication: BIPOLAR DISORDER
     Dosage: 200-300 MG
     Route: 048
     Dates: start: 20020101
  4. SEROQUEL [Suspect]
     Route: 048
     Dates: end: 20050101
  5. SEROQUEL [Suspect]
     Route: 048
     Dates: end: 20050101
  6. SEROQUEL [Suspect]
     Route: 048
     Dates: end: 20050101
  7. GEODON [Concomitant]
     Dates: start: 20040101
  8. HALDOL [Concomitant]
  9. RISPERDAL [Concomitant]
  10. THORAZINE [Concomitant]
  11. ZYPREXA [Concomitant]
  12. PAXIL [Concomitant]
     Dates: start: 20020101
  13. NEURONTIN [Concomitant]
     Dates: start: 20020101
  14. PROTONIX [Concomitant]
     Dates: start: 20030101

REACTIONS (5)
  - DIABETES MELLITUS [None]
  - DIABETIC EYE DISEASE [None]
  - PANCREATITIS [None]
  - TARDIVE DYSKINESIA [None]
  - VISUAL ACUITY REDUCED [None]
